FAERS Safety Report 8574510-X (Version None)
Quarter: 2012Q3

REPORT INFORMATION
  Report Type: 
  Country: None (occurrence: None)
  Receive Date: 20120806
  Receipt Date: 20120722
  Transmission Date: 20120928
  Serious: No
  Sender: FDA-Public Use
  Company Number: US-009507513-1207USA010109

PATIENT

DRUGS (4)
  1. PEGINTERFERON ALFA-2A [Suspect]
     Dosage: UNK, UNKNOWN
  2. STUDY DRUG (UNSPECIFIED) [Suspect]
     Dosage: UNK, UNKNOWN
  3. RIBAVIRIN [Suspect]
     Dosage: UNK, UNKNOWN
  4. STUDY DRUG (UNSPECIFIED) [Suspect]
     Indication: HEPATITIS C
     Dosage: UNK, UNKNOWN

REACTIONS (1)
  - OVERDOSE [None]
